FAERS Safety Report 19097054 (Version 1)
Quarter: 2021Q2

REPORT INFORMATION
  Report Type: Spontaneous
  Country: US (occurrence: US)
  Receive Date: 20210406
  Receipt Date: 20210406
  Transmission Date: 20210717
  Serious: Yes (Other)
  Sender: FDA-Public Use
  Company Number: US-GLAXOSMITHKLINE-US2021GSK074843

PATIENT
  Sex: Female

DRUGS (12)
  1. RANITIDINE. [Suspect]
     Active Substance: RANITIDINE
     Indication: DYSPEPSIA
     Dosage: 150 MG, QD
     Route: 065
     Dates: start: 199301, end: 199901
  2. ZANTAC [Suspect]
     Active Substance: RANITIDINE HYDROCHLORIDE
     Indication: DYSPEPSIA
     Dosage: 150 MG BOTH
     Route: 065
     Dates: start: 199301, end: 199901
  3. RANITIDINE CAPSULE [Suspect]
     Active Substance: RANITIDINE
     Indication: GASTRIC POLYPS
     Dosage: UNKNOWN AT THIS TIME BOTH
     Route: 065
     Dates: start: 199301, end: 199901
  4. ZANTAC [Suspect]
     Active Substance: RANITIDINE HYDROCHLORIDE
     Indication: GASTRIC POLYPS
     Dosage: UNKNOWN AT THIS TIME, QD
     Route: 065
     Dates: start: 199301, end: 199901
  5. RANITIDINE. [Suspect]
     Active Substance: RANITIDINE
     Indication: GASTRIC POLYPS
     Dosage: UNKNOWN AT THIS TIME, QD
     Route: 065
     Dates: start: 199301, end: 199901
  6. RANITIDINE. [Suspect]
     Active Substance: RANITIDINE
     Indication: DYSPEPSIA
     Dosage: 150 MG BOTH
     Route: 065
     Dates: start: 199301, end: 199901
  7. RANITIDINE. [Suspect]
     Active Substance: RANITIDINE
     Indication: GASTRIC POLYPS
     Dosage: UNK, QD
     Route: 065
     Dates: start: 199301, end: 199901
  8. RANITIDINE. [Suspect]
     Active Substance: RANITIDINE
     Indication: DYSPEPSIA
     Dosage: 150 MG BOTH
     Route: 065
     Dates: start: 199301, end: 199901
  9. RANITIDINE CAPSULE [Suspect]
     Active Substance: RANITIDINE
     Indication: DYSPEPSIA
     Dosage: 150 MG BOTH
     Route: 065
     Dates: start: 199301, end: 199901
  10. ZANTAC [Suspect]
     Active Substance: RANITIDINE HYDROCHLORIDE
     Indication: DYSPEPSIA
     Dosage: 150 MG BOTH
     Route: 065
     Dates: start: 199301, end: 199901
  11. ZANTAC [Suspect]
     Active Substance: RANITIDINE HYDROCHLORIDE
     Indication: GASTRIC POLYPS
     Dosage: UNKNOWN AT THIS TIME, QD
     Route: 065
     Dates: start: 199301, end: 199901
  12. RANITIDINE. [Suspect]
     Active Substance: RANITIDINE
     Indication: GASTRIC POLYPS
     Dosage: UNKNOWN AT THIS TIME, QD
     Route: 065
     Dates: start: 199301, end: 199901

REACTIONS (1)
  - Renal cancer [Unknown]
